FAERS Safety Report 8327947-8 (Version None)
Quarter: 2012Q2

REPORT INFORMATION
  Report Type: 
  Country: None (occurrence: None)
  Receive Date: 20120502
  Receipt Date: 20120427
  Transmission Date: 20120825
  Serious: Yes (Other)
  Sender: FDA-Public Use
  Company Number: US-BAYER-2012-033186

PATIENT
  Age: 33 Year
  Sex: Male
  Weight: 81.633 kg

DRUGS (1)
  1. MAGNEVIST [Suspect]
     Indication: NUCLEAR MAGNETIC RESONANCE IMAGING ABDOMINAL
     Dosage: 20 ML, ONCE
     Route: 042
     Dates: start: 20120401, end: 20120401

REACTIONS (5)
  - NASAL DISCOMFORT [None]
  - URTICARIA [None]
  - EYELID OEDEMA [None]
  - LIP SWELLING [None]
  - THROAT IRRITATION [None]
